FAERS Safety Report 13480820 (Version 3)
Quarter: 2018Q1

REPORT INFORMATION
  Report Type: Report from Study
  Country: US (occurrence: US)
  Receive Date: 20170424
  Receipt Date: 20180115
  Transmission Date: 20180508
  Serious: No
  Sender: FDA-Public Use
  Company Number: US-AMGEN-USASL2017012937

PATIENT
  Age: 85 Year
  Sex: Female
  Weight: 92.97 kg

DRUGS (2)
  1. REPATHA [Suspect]
     Active Substance: EVOLOCUMAB
     Indication: HYPERLIPIDAEMIA
  2. REPATHA [Suspect]
     Active Substance: EVOLOCUMAB
     Indication: HYPERCHOLESTEROLAEMIA
     Dosage: 140 MG, Q2WK
     Route: 065

REACTIONS (9)
  - Injection site swelling [Recovered/Resolved]
  - Road traffic accident [Unknown]
  - Injection site pain [Unknown]
  - Injection site warmth [Recovered/Resolved]
  - Mental disorder [Not Recovered/Not Resolved]
  - Drug dose omission [Unknown]
  - Nervousness [Not Recovered/Not Resolved]
  - Injection site pruritus [Recovered/Resolved]
  - Injection site erythema [Recovered/Resolved]

NARRATIVE: CASE EVENT DATE: 20170127
